FAERS Safety Report 16350624 (Version 1)
Quarter: 2019Q2

REPORT INFORMATION
  Report Type: Spontaneous
  Country: FR (occurrence: FR)
  Receive Date: 20190524
  Receipt Date: 20190524
  Transmission Date: 20190711
  Serious: Yes (Other)
  Sender: FDA-Public Use
  Company Number: FR-UCBSA-2019020852

PATIENT
  Age: 7 Year
  Sex: Female
  Weight: 20 kg

DRUGS (2)
  1. KEPPRA [Suspect]
     Active Substance: LEVETIRACETAM
     Indication: PARTIAL SEIZURES
     Dosage: UNK
     Route: 048
     Dates: start: 201804
  2. TEGRETOL [Suspect]
     Active Substance: CARBAMAZEPINE
     Indication: PARTIAL SEIZURES
     Dosage: 200 MG DAILY
     Route: 048
     Dates: start: 20190314, end: 20190326

REACTIONS (2)
  - Pruritus [Not Recovered/Not Resolved]
  - Erythema [Not Recovered/Not Resolved]

NARRATIVE: CASE EVENT DATE: 20190326
